FAERS Safety Report 14885788 (Version 1)
Quarter: 2018Q2

REPORT INFORMATION
  Report Type: Report from Study
  Country: US (occurrence: US)
  Receive Date: 20180512
  Receipt Date: 20180512
  Transmission Date: 20180711
  Serious: Yes (Hospitalization)
  Sender: FDA-Public Use
  Company Number: US-ROCHE-1626735

PATIENT
  Age: 64 Year
  Sex: Male
  Weight: 59.02 kg

DRUGS (16)
  1. HYDROXYZINE [Concomitant]
     Active Substance: HYDROXYZINE HYDROCHLORIDE
  2. CALCIUM FOLINATE [Suspect]
     Active Substance: LEUCOVORIN CALCIUM
     Indication: COLORECTAL CANCER METASTATIC
     Route: 042
     Dates: start: 20150410
  3. CYCLOBENZAPRINE. [Concomitant]
     Active Substance: CYCLOBENZAPRINE
  4. MORPHINE ER [Concomitant]
     Active Substance: MORPHINE
  5. SENNA S [Concomitant]
     Active Substance: DOCUSATE SODIUM\SENNA LEAF
  6. BEVACIZUMAB. [Suspect]
     Active Substance: BEVACIZUMAB
     Indication: COLORECTAL CANCER METASTATIC
     Route: 042
     Dates: start: 20150410
  7. 5-FLUOROURACIL [Suspect]
     Active Substance: FLUOROURACIL
     Indication: COLORECTAL CANCER METASTATIC
     Route: 042
     Dates: start: 20150410
  8. LISINOPRIL. [Concomitant]
     Active Substance: LISINOPRIL
  9. ZOFRAN [Concomitant]
     Active Substance: ONDANSETRON HYDROCHLORIDE
  10. PROCHLORPERAZINE. [Concomitant]
     Active Substance: PROCHLORPERAZINE
  11. SIMVASTATIN. [Concomitant]
     Active Substance: SIMVASTATIN
  12. FELODIPINE. [Concomitant]
     Active Substance: FELODIPINE
  13. CLONIDIN [Concomitant]
     Active Substance: CLONIDINE
  14. OXALIPLATIN. [Suspect]
     Active Substance: OXALIPLATIN
     Indication: COLORECTAL CANCER METASTATIC
     Route: 042
     Dates: start: 20150410
  15. MORPHINE IR [Concomitant]
     Active Substance: MORPHINE
  16. POTASSIUM CHLORIDE. [Concomitant]
     Active Substance: POTASSIUM CHLORIDE

REACTIONS (3)
  - Pneumonia staphylococcal [Unknown]
  - Large intestinal obstruction [Unknown]
  - Dehydration [Unknown]

NARRATIVE: CASE EVENT DATE: 20150814
